FAERS Safety Report 16023549 (Version 3)
Quarter: 2019Q1

REPORT INFORMATION
  Report Type: Spontaneous
  Country: US (occurrence: US)
  Receive Date: 20190301
  Receipt Date: 20190321
  Transmission Date: 20190418
  Serious: Yes (Hospitalization, Other)
  Sender: FDA-Public Use
  Company Number: US-ABBVIE-19S-163-2685517-00

PATIENT
  Sex: Male

DRUGS (1)
  1. GENGRAF [Suspect]
     Active Substance: CYCLOSPORINE
     Indication: PRODUCT USED FOR UNKNOWN INDICATION
     Route: 048

REACTIONS (29)
  - Pain in extremity [Unknown]
  - Hypertension [Unknown]
  - Lung infection [Unknown]
  - Platelet count decreased [Unknown]
  - Headache [Unknown]
  - Yellow skin [Unknown]
  - Arthralgia [Unknown]
  - Ear disorder [Unknown]
  - Paraesthesia [Unknown]
  - Weight decreased [Unknown]
  - Depression [Unknown]
  - Tremor [Unknown]
  - Seizure [Unknown]
  - Hypoacusis [Unknown]
  - Growth retardation [Unknown]
  - Gingival hypertrophy [Unknown]
  - Muscle spasms [Unknown]
  - Hair growth abnormal [Unknown]
  - Sinus disorder [Unknown]
  - Sluggishness [Unknown]
  - Myalgia [Unknown]
  - Asthenia [Unknown]
  - Infection [Unknown]
  - Renal injury [Unknown]
  - Hypoaesthesia [Unknown]
  - Dyspnoea [Unknown]
  - Confusional state [Unknown]
  - Anxiety [Unknown]
  - Migraine [Unknown]

NARRATIVE: CASE EVENT DATE: 1998
